FAERS Safety Report 9695783 (Version 1)
Quarter: 2013Q4

REPORT INFORMATION
  Report Type: Spontaneous
  Country: US (occurrence: None)
  Receive Date: 20131118
  Receipt Date: 20131118
  Transmission Date: 20140711
  Serious: Yes (Life-Threatening, Hospitalization)
  Sender: FDA-Public Use
  Company Number: None

PATIENT
  Age: 19 Year
  Sex: Female
  Weight: 56.7 kg

DRUGS (2)
  1. NYQUIL COUGH [Suspect]
     Indication: RHINORRHOEA
     Dosage: AT BED TIME TAKING PER MOUTH
     Route: 048
     Dates: start: 20131113
  2. NYQUIL COUGH [Suspect]
     Indication: COUGH
     Dosage: AT BED TIME TAKING PER MOUTH
     Route: 048
     Dates: start: 20131113

REACTIONS (3)
  - Dyspnoea [None]
  - Swelling face [None]
  - Loss of consciousness [None]
